FAERS Safety Report 9969706 (Version 1)
Quarter: 2014Q1

REPORT INFORMATION
  Report Type: Spontaneous
  Country: US (occurrence: None)
  Receive Date: 20140304
  Receipt Date: 20140304
  Transmission Date: 20141002
  Serious: Yes (Hospitalization)
  Sender: FDA-Public Use
  Company Number: None

PATIENT
  Age: 32 Year
  Sex: Female
  Weight: 79.38 kg

DRUGS (1)
  1. BUTRANS PATCH BUPRENORPHINE, 20 MG, BUTRANS [Suspect]
     Indication: FIBROMYALGIA
     Dosage: APPLIED AS MEDICATED PATCH TO SKIN
     Dates: start: 20130405, end: 20130925

REACTIONS (7)
  - Dizziness [None]
  - Asthenia [None]
  - Disorientation [None]
  - Nausea [None]
  - Vomiting [None]
  - Abdominal pain upper [None]
  - Dehydration [None]
